FAERS Safety Report 11247076 (Version 1)
Quarter: 2015Q3

REPORT INFORMATION
  Report Type: Spontaneous
  Country: US (occurrence: None)
  Receive Date: 20150706
  Receipt Date: 20150706
  Transmission Date: 20151125
  Serious: Yes (Death, Hospitalization)
  Sender: FDA-Public Use
  Company Number: US-FAC-000057

PATIENT
  Age: 48 Year
  Sex: Male

DRUGS (2)
  1. CEFAZOLIN [Suspect]
     Active Substance: CEFAZOLIN
     Indication: STAPHYLOCOCCAL INFECTION
     Route: 041
  2. RIFAMPICIN [Concomitant]
     Active Substance: RIFAMPIN

REACTIONS (7)
  - Anaemia [None]
  - Cardiac failure congestive [None]
  - Aortic valve incompetence [None]
  - Thrombocytopenia [None]
  - Dilatation ventricular [None]
  - Staphylococcal bacteraemia [None]
  - No therapeutic response [None]
